FAERS Safety Report 5071769-0 (Version None)
Quarter: 2006Q3

REPORT INFORMATION
  Report Type: 
  Country: None (occurrence: None)
  Receive Date: 20060801
  Receipt Date: 20060720
  Transmission Date: 20061208
  Serious: Yes (Death, Other)
  Sender: FDA-Public Use
  Company Number: JP200606003953

PATIENT
  Age: 69 Year
  Sex: Male
  Weight: 56 kg

DRUGS (6)
  1. GEMZAR [Suspect]
     Indication: PANCREATIC CARCINOMA STAGE IV
     Dosage: 1500 MG, OTHER, INTRAVENOUS
     Route: 042
     Dates: start: 20060412, end: 20060510
  2. LOXONIN (LOXOPROFEN SODIUM) [Concomitant]
  3. MUCOSTA (REBAMIPIDE) [Concomitant]
  4. SULPERAZON (CEFOPERAZONE SODIUM, SULBACTAM SODIUM) [Concomitant]
  5. FUTHAN (NAFAMOSTAT MESILATE) [Concomitant]
  6. FAMOTIDINE [Concomitant]

REACTIONS (5)
  - CHOLANGITIS [None]
  - DILATATION INTRAHEPATIC DUCT ACQUIRED [None]
  - MALIGNANT NEOPLASM PROGRESSION [None]
  - PANCREATIC CARCINOMA [None]
  - PNEUMONITIS [None]
